FAERS Safety Report 6030633-0 (Version None)
Quarter: 2008Q4

REPORT INFORMATION
  Report Type: 
  Country: None (occurrence: None)
  Receive Date: 20081222
  Receipt Date: 20080911
  Transmission Date: 20090506
  Serious: No
  Sender: FDA-Public Use
  Company Number: US-WYE-H05962708

PATIENT
  Age: 35 Year
  Sex: Female

DRUGS (2)
  1. PRISTIQ [Suspect]
     Indication: DEPRESSION
     Dosage: 50 MG 1X PER 1 DAY, ORAL
     Route: 048
     Dates: start: 20080828, end: 20080922
  2. LAMICTAL [Concomitant]

REACTIONS (2)
  - GAIT DISTURBANCE [None]
  - HYPERTONIA [None]
